FAERS Safety Report 10817201 (Version 1)
Quarter: 2015Q1

REPORT INFORMATION
  Report Type: Report from Study
  Country: ZW (occurrence: ZW)
  Receive Date: 20150218
  Receipt Date: 20150218
  Transmission Date: 20150721
  Serious: Yes (Life-Threatening)
  Sender: FDA-Public Use
  Company Number: ZW-BRISTOL-MYERS SQUIBB COMPANY-BMS-2015-007395

PATIENT
  Age: 44 Year
  Sex: Male
  Weight: 101 kg

DRUGS (4)
  1. EFAVIRENZ [Suspect]
     Active Substance: EFAVIRENZ
     Indication: HIV INFECTION
     Dosage: 600 MG, QD
     Route: 048
     Dates: start: 20091119, end: 20130515
  2. ATAZANAVIR SULFATE [Suspect]
     Active Substance: ATAZANAVIR SULFATE
     Indication: HIV INFECTION
     Dosage: 400 MG, QD
     Route: 048
     Dates: start: 20130619
  3. LAMIVUDINE AND ZIDOVUDINE [Suspect]
     Active Substance: LAMIVUDINE\ZIDOVUDINE
     Indication: HIV INFECTION
     Dosage: 1 DF, BID
     Route: 048
     Dates: start: 20130605
  4. LOPINAVIR + RITONAVIR [Suspect]
     Active Substance: LOPINAVIR\RITONAVIR
     Indication: HIV INFECTION
     Dosage: 1 DF, BID
     Route: 048
     Dates: start: 20130605, end: 20130619

REACTIONS (1)
  - Hepatotoxicity [Not Recovered/Not Resolved]

NARRATIVE: CASE EVENT DATE: 20150128
